FAERS Safety Report 5862142-3 (Version None)
Quarter: 2008Q3

REPORT INFORMATION
  Report Type: 
  Country: None (occurrence: None)
  Receive Date: 20080828
  Receipt Date: 20080317
  Transmission Date: 20090109
  Serious: No
  Sender: FDA-Public Use
  Company Number: A0715790A

PATIENT
  Age: 33 Year
  Sex: Male

DRUGS (2)
  1. ACYCLOVIR [Suspect]
     Route: 048
  2. VALTREX [Suspect]
     Dosage: 2000MG TWICE PER DAY
     Route: 048
     Dates: start: 20070101

REACTIONS (1)
  - DRUG INEFFECTIVE [None]
